FAERS Safety Report 6201806-9 (Version None)
Quarter: 2009Q2

REPORT INFORMATION
  Report Type: 
  Country: None (occurrence: None)
  Receive Date: 20090518
  Receipt Date: 20090330
  Transmission Date: 20091009
  Serious: No
  Sender: FDA-Public Use
  Company Number: WAES 0903USA05494

PATIENT
  Age: 87 Year
  Sex: Female

DRUGS (5)
  1. JANUVIA [Suspect]
     Indication: TYPE 2 DIABETES MELLITUS
     Dosage: 100 MG/DAILY/PO : 50 MG/DAILY/PO : PO
     Route: 048
     Dates: start: 20090328, end: 20090329
  2. JANUVIA [Suspect]
     Indication: TYPE 2 DIABETES MELLITUS
     Dosage: 100 MG/DAILY/PO : 50 MG/DAILY/PO : PO
     Route: 048
     Dates: end: 20090401
  3. JANUVIA [Suspect]
     Indication: TYPE 2 DIABETES MELLITUS
     Dosage: 100 MG/DAILY/PO : 50 MG/DAILY/PO : PO
     Route: 048
     Dates: start: 20090327
  4. CATAPRES [Concomitant]
  5. TOPROL-XL [Concomitant]

REACTIONS (5)
  - DIZZINESS [None]
  - HEAD DISCOMFORT [None]
  - HEADACHE [None]
  - HEART RATE INCREASED [None]
  - WRONG TECHNIQUE IN DRUG USAGE PROCESS [None]
